FAERS Safety Report 7429073-9 (Version None)
Quarter: 2011Q2

REPORT INFORMATION
  Report Type: 
  Country: None (occurrence: None)
  Receive Date: 20110421
  Receipt Date: 20110418
  Transmission Date: 20111010
  Serious: Yes (Other)
  Sender: FDA-Public Use
  Company Number: US-ROCHE-751889

PATIENT
  Sex: Male
  Weight: 74.8 kg

DRUGS (8)
  1. BANEX [Concomitant]
     Indication: NASAL CONGESTION
  2. APO-LORAZEPAM [Concomitant]
     Indication: ANXIETY
  3. GUAIFENESIN [Concomitant]
  4. THORAZINE [Concomitant]
     Indication: ANXIETY
     Dates: start: 19960101
  5. BACTROBAN [Concomitant]
     Indication: SKIN INFECTION
  6. ACCUTANE [Suspect]
     Indication: ACNE
     Route: 048
     Dates: start: 19960427, end: 19960920
  7. ZOLOFT [Concomitant]
     Indication: DEPRESSION
     Dates: start: 19940101
  8. RITALIN [Concomitant]

REACTIONS (4)
  - ANXIETY [None]
  - PROCTITIS [None]
  - COLITIS ULCERATIVE [None]
  - PROCTOCOLITIS [None]
